FAERS Safety Report 8828841 (Version 1)
Quarter: 2012Q4

REPORT INFORMATION
  Report Type: 
  Country: NL (occurrence: NL)
  Receive Date: 20121008
  Receipt Date: 20121008
  Transmission Date: 20130627
  Serious: Yes (Life-Threatening, Hospitalization)
  Sender: FDA-Public Use
  Company Number: NL-ELI_LILLY_AND_COMPANY-US_000439596

PATIENT
  Age: 65 Year
  Sex: Female

DRUGS (3)
  1. GEMZAR [Suspect]
     Indication: LUNG ADENOCARCINOMA
     Dosage: 1600 mg, qd
     Route: 042
     Dates: start: 19971029, end: 19971030
  2. LOPID [Concomitant]
     Dosage: 600 mg, qd
     Route: 048
  3. ZOCOR [Concomitant]
     Dosage: 10 mg, qd

REACTIONS (2)
  - Interstitial lung disease [Recovered/Resolved]
  - Respiratory failure [Recovered/Resolved]
